FAERS Safety Report 6978807-6 (Version None)
Quarter: 2010Q3

REPORT INFORMATION
  Report Type: 
  Country: None (occurrence: None)
  Receive Date: 20100913
  Receipt Date: 20100903
  Transmission Date: 20110219
  Serious: Yes (Hospitalization)
  Sender: FDA-Public Use
  Company Number: AU-SANOFI-AVENTIS-2010SA053194

PATIENT

DRUGS (2)
  1. LANTUS [Suspect]
  2. INSULIN [Concomitant]

REACTIONS (2)
  - DIABETIC KETOACIDOSIS [None]
  - DRUG INEFFECTIVE [None]
